FAERS Safety Report 16544489 (Version 3)
Quarter: 2019Q3

REPORT INFORMATION
  Report Type: Spontaneous
  Country: JP (occurrence: JP)
  Receive Date: 20190709
  Receipt Date: 20190802
  Transmission Date: 20191004
  Serious: Yes (Death, Other)
  Sender: FDA-Public Use
  Company Number: JP-FERRINGPH-2019FE04063

PATIENT
  Age: 77 Year
  Sex: Male

DRUGS (7)
  1. GONAX [Suspect]
     Active Substance: DEGARELIX
     Dosage: 120 MG, UNK
     Route: 058
     Dates: start: 20131129
  2. ROSUVASTATIN                       /01588602/ [Concomitant]
     Active Substance: ROSUVASTATIN CALCIUM
  3. GONAX [Suspect]
     Active Substance: DEGARELIX
     Indication: PROSTATE CANCER
     Dosage: 80 MG, EVERY 4 WEEKS
     Route: 058
     Dates: end: 20190524
  4. TAKECAB [Concomitant]
     Active Substance: VONOPRAZAN FUMURATE
  5. CILNIDIPINE [Concomitant]
     Active Substance: CILNIDIPINE
  6. JANUVIA [Concomitant]
     Active Substance: SITAGLIPTIN PHOSPHATE
  7. METFORMIN HYDROCHLORIDE. [Concomitant]
     Active Substance: METFORMIN HYDROCHLORIDE

REACTIONS (3)
  - Product preparation error [Unknown]
  - Prescribed underdose [Unknown]
  - Depressed level of consciousness [Fatal]

NARRATIVE: CASE EVENT DATE: 20190607
